FAERS Safety Report 8575191-1 (Version None)
Quarter: 2012Q2

REPORT INFORMATION
  Report Type: 
  Country: None (occurrence: None)
  Receive Date: 20120423
  Receipt Date: 20091001
  Transmission Date: 20120825
  Serious: Yes (Other)
  Sender: FDA-Public Use
  Company Number: PHEH2009US08592

PATIENT
  Age: 34 Year
  Sex: Female

DRUGS (1)
  1. EXJADE [Suspect]
     Dosage: 1500 MG, QD, ORAL
     Route: 048
     Dates: start: 20060502, end: 20090625

REACTIONS (4)
  - PYREXIA [None]
  - INFECTION [None]
  - CHILLS [None]
  - HEADACHE [None]
